FAERS Safety Report 6048462-0 (Version None)
Quarter: 2009Q1

REPORT INFORMATION
  Report Type: 
  Country: None (occurrence: None)
  Receive Date: 20090123
  Receipt Date: 20090116
  Transmission Date: 20090719
  Serious: Yes (Hospitalization)
  Sender: FDA-Public Use
  Company Number: A0764680A

PATIENT
  Age: 48 Year
  Sex: Female
  Weight: 106.8 kg

DRUGS (9)
  1. AVANDIA [Suspect]
     Dosage: 4MG PER DAY
     Route: 048
     Dates: start: 20020509, end: 20080201
  2. AVANDARYL [Suspect]
     Route: 048
     Dates: start: 20061228, end: 20070101
  3. METFORMIN [Concomitant]
  4. INSULIN [Concomitant]
  5. LISINOPRIL [Concomitant]
  6. ZOCOR [Concomitant]
  7. CRESTOR [Concomitant]
  8. SIMVASTATIN [Concomitant]
  9. PROMETHAZINE [Concomitant]

REACTIONS (3)
  - CORONARY ARTERY DISEASE [None]
  - MYOCARDIAL INFARCTION [None]
  - PAIN [None]
